FAERS Safety Report 23303574 (Version 1)
Quarter: 2023Q4

REPORT INFORMATION
  Report Type: Spontaneous
  Country: US (occurrence: None)
  Receive Date: 20231215
  Receipt Date: 20231215
  Transmission Date: 20240110
  Serious: Yes (Disabling)
  Sender: FDA-Public Use
  Company Number: None

PATIENT
  Age: 31 Year
  Sex: Female
  Weight: 66.15 kg

DRUGS (2)
  1. CIPROFLOXACIN [Suspect]
     Active Substance: CIPROFLOXACIN
     Indication: Ear infection
     Dates: start: 20231116, end: 20231126
  2. Prenatal multivitamin [Concomitant]

REACTIONS (4)
  - Tendon pain [None]
  - Ocular hyperaemia [None]
  - Eye irritation [None]
  - Pinguecula [None]

NARRATIVE: CASE EVENT DATE: 20231126
